FAERS Safety Report 10109231 (Version 1)
Quarter: 2014Q2

REPORT INFORMATION
  Report Type: Spontaneous
  Country: GB (occurrence: GB)
  Receive Date: 20140425
  Receipt Date: 20140425
  Transmission Date: 20141212
  Serious: Yes (Other)
  Sender: FDA-Public Use
  Company Number: GB-MYLANLABS-2014S1008851

PATIENT
  Age: 85 Year
  Sex: Female

DRUGS (7)
  1. ATORVASTATIN [Suspect]
  2. BISOPROLOL [Suspect]
  3. CLOMETHIAZOLE [Suspect]
     Indication: SLEEP DISORDER
     Dosage: NOTE DOSE WAS REDUCED FROM TWO TO ONE CAPSULES DAILY
     Route: 048
  4. CLOMETHIAZOLE [Suspect]
     Indication: SLEEP DISORDER
     Route: 048
     Dates: start: 20130328
  5. DIGOXIN [Suspect]
  6. PARACETAMOL [Suspect]
  7. PROTHIADEN [Suspect]

REACTIONS (5)
  - Agitation [Not Recovered/Not Resolved]
  - Decreased appetite [Not Recovered/Not Resolved]
  - Liver disorder [Not Recovered/Not Resolved]
  - Renal failure [Not Recovered/Not Resolved]
  - Insomnia [Not Recovered/Not Resolved]
